FAERS Safety Report 7494517-3 (Version None)
Quarter: 2011Q2

REPORT INFORMATION
  Report Type: 
  Country: None (occurrence: None)
  Receive Date: 20110520
  Receipt Date: 20110509
  Transmission Date: 20111010
  Serious: Yes (Hospitalization)
  Sender: FDA-Public Use
  Company Number: PHHY2008BR34139

PATIENT
  Sex: Female
  Weight: 46 kg

DRUGS (3)
  1. ZOLEDRONIC ACID [Suspect]
     Indication: OSTEOPOROSIS
     Dosage: 5 MG, UNK
     Route: 042
     Dates: start: 20081203
  2. ZOLEDRONIC ACID [Suspect]
     Dosage: 5 MG, UNK
     Route: 042
     Dates: start: 20110201
  3. CALTRATE 600 + VITAMIN D [Concomitant]
     Indication: MENOPAUSE
     Dosage: 600 MG, 2 TABLETS DAILY

REACTIONS (8)
  - OSTEOARTHRITIS [None]
  - BLOOD PRESSURE DECREASED [None]
  - INFLUENZA LIKE ILLNESS [None]
  - ANAEMIA [None]
  - MYALGIA [None]
  - WEIGHT DECREASED [None]
  - BONE PAIN [None]
  - HAEMORRHAGE [None]
